FAERS Safety Report 24630197 (Version 1)
Quarter: 2024Q4

REPORT INFORMATION
  Report Type: Spontaneous
  Country: US (occurrence: US)
  Receive Date: 20241118
  Receipt Date: 20241118
  Transmission Date: 20250114
  Serious: No
  Sender: SANDOZ
  Company Number: US-SANDOZ-SDZ2024US095686

PATIENT
  Sex: Female

DRUGS (3)
  1. HYRIMOZ [Suspect]
     Active Substance: ADALIMUMAB-ADAZ
     Indication: Product used for unknown indication
     Dosage: UNK
     Route: 065
  2. LUMRYZ [Suspect]
     Active Substance: SODIUM OXYBATE
     Dosage: 9 G, QD,ONCE NIGHTLY AT BEDTIME
     Route: 048
  3. LUMRYZ [Suspect]
     Active Substance: SODIUM OXYBATE
     Indication: Narcolepsy
     Dosage: 9 G, QD,ONCE NIGHTLY,EXTENDED-RELEASE ORAL SUSPENSION
     Route: 048
     Dates: start: 202312

REACTIONS (3)
  - Gastrointestinal pain [Unknown]
  - Abdominal pain [Unknown]
  - Unevaluable event [Unknown]
